FAERS Safety Report 10351657 (Version 2)
Quarter: 2014Q3

REPORT INFORMATION
  Report Type: Spontaneous
  Country: US (occurrence: US)
  Receive Date: 20140730
  Receipt Date: 20140918
  Transmission Date: 20150326
  Serious: Yes (Other)
  Sender: FDA-Public Use
  Company Number: US-FRI-1000069246

PATIENT
  Sex: Male

DRUGS (4)
  1. ARMOUR THYROID [Suspect]
     Active Substance: THYROID, PORCINE\THYROID, UNSPECIFIED
     Indication: HYPOTHYROIDISM
     Dosage: 90MG
     Route: 048
  2. ARMOUR THYROID [Suspect]
     Active Substance: THYROID, PORCINE\THYROID, UNSPECIFIED
     Dosage: 45MG
     Route: 048
     Dates: end: 201408
  3. STERIOD (NOS) [Suspect]
     Active Substance: UNSPECIFIED INGREDIENT
  4. ANTIBIOTIC (NOS) [Suspect]
     Active Substance: UNSPECIFIED INGREDIENT

REACTIONS (6)
  - Cataract [Recovered/Resolved]
  - Hyperthyroidism [Not Recovered/Not Resolved]
  - Unevaluable event [Not Recovered/Not Resolved]
  - Burning sensation [Recovered/Resolved]
  - Anxiety [Not Recovered/Not Resolved]
  - Fatigue [Not Recovered/Not Resolved]
